FAERS Safety Report 7419751-X (Version None)
Quarter: 2011Q2

REPORT INFORMATION
  Report Type: 
  Country: None (occurrence: None)
  Receive Date: 20110418
  Receipt Date: 20110408
  Transmission Date: 20111010
  Serious: Yes (Hospitalization)
  Sender: FDA-Public Use
  Company Number: HR-ASTELLAS-2011EU001871

PATIENT
  Age: 57 Year
  Sex: Male

DRUGS (6)
  1. FRAXIPARINE [Concomitant]
     Dosage: 0.4 ML, UNKNOWN/D
     Route: 058
  2. PRAZINE [Concomitant]
     Dosage: UNK
     Route: 065
  3. PANTOPRAZOLE SODIUM [Concomitant]
     Dosage: UNK
     Route: 048
  4. PROGRAF [Interacting]
     Indication: PROPHYLAXIS AGAINST TRANSPLANT REJECTION
     Dosage: 4 MG, UNKNOWN/D
     Route: 042
     Dates: start: 20110222
  5. DIFLUCAN [Suspect]
     Dosage: 100 MG, BID
     Route: 048
     Dates: start: 20110222
  6. CELLCEPT [Interacting]
     Indication: PROPHYLAXIS AGAINST TRANSPLANT REJECTION
     Dosage: 1 G, BID
     Route: 042
     Dates: start: 20110222

REACTIONS (5)
  - DRUG INTERACTION [None]
  - DISORIENTATION [None]
  - DELIRIUM [None]
  - AGITATION [None]
  - RESTLESSNESS [None]
